FAERS Safety Report 10415593 (Version 1)
Quarter: 2014Q2

REPORT INFORMATION
  Report Type: Spontaneous
  Country: US (occurrence: None)
  Receive Date: 20140604
  Receipt Date: 20140604
  Transmission Date: 20141212
  Serious: No
  Sender: FDA-Public Use
  Company Number: 163-POMAL-14021638

PATIENT
  Age: 84 Year
  Sex: Male
  Weight: 106.73 kg

DRUGS (9)
  1. POMALYST (POMALIDOMIDE) (4 MILLIGRAM, CAPSULES) [Suspect]
     Indication: PLASMA CELL MYELOMA
     Route: 048
     Dates: start: 201311, end: 20131203
  2. VITAMIN B12 (CYANCOBALAMIN) [Concomitant]
  3. POTASSIUM [Concomitant]
  4. DECADRON (DEXAMETHASONE) [Concomitant]
  5. LYRIC (DIFENIDOL HYDROCHLORIDE) [Concomitant]
  6. HCTZ (HYDROCHLOROTHIAZIDE) [Concomitant]
  7. LEVAQUIN (LEVOFLOXACIN) [Concomitant]
  8. ZOMETA (ZOLEDRONIC ACID) [Concomitant]
  9. FLOMAX [Concomitant]

REACTIONS (4)
  - Drug dose omission [None]
  - Muscle spasms [None]
  - Rash [None]
  - Dizziness [None]
